FAERS Safety Report 20900915 (Version 1)
Quarter: 2022Q2

REPORT INFORMATION
  Report Type: Spontaneous
  Country: JP (occurrence: JP)
  Receive Date: 20220601
  Receipt Date: 20220601
  Transmission Date: 20220721
  Serious: Yes (Death, Life-Threatening, Other)
  Sender: FDA-Public Use
  Company Number: JP-AMGEN-JPNSP2022093813

PATIENT

DRUGS (3)
  1. BLINATUMOMAB [Suspect]
     Active Substance: BLINATUMOMAB
     Indication: Acute lymphocytic leukaemia recurrent
     Dosage: UNK
     Route: 065
  2. INOTUZUMAB OZOGAMICIN [Concomitant]
     Active Substance: INOTUZUMAB OZOGAMICIN
  3. PONATINIB [Concomitant]
     Active Substance: PONATINIB

REACTIONS (5)
  - Death [Fatal]
  - Acute graft versus host disease [Unknown]
  - Acute lymphocytic leukaemia recurrent [Unknown]
  - Venoocclusive liver disease [Unknown]
  - Treatment failure [Unknown]
